FAERS Safety Report 8196200-8 (Version None)
Quarter: 2012Q1

REPORT INFORMATION
  Report Type: 
  Country: None (occurrence: None)
  Receive Date: 20120306
  Receipt Date: 20120222
  Transmission Date: 20120608
  Serious: Yes (Other)
  Sender: FDA-Public Use
  Company Number: 0226070

PATIENT
  Sex: Female

DRUGS (1)
  1. TACHOSIL [Suspect]
     Indication: POSTPARTUM HAEMORRHAGE

REACTIONS (4)
  - OFF LABEL USE [None]
  - MEDICATION RESIDUE [None]
  - MATERNAL EXPOSURE DURING DELIVERY [None]
  - CAESAREAN SECTION [None]
